FAERS Safety Report 8828163 (Version 1)
Quarter: 2012Q4

REPORT INFORMATION
  Report Type: 
  Country: US (occurrence: US)
  Receive Date: 20121005
  Receipt Date: 20121005
  Transmission Date: 20130627
  Serious: No
  Sender: FDA-Public Use
  Company Number: US-PFIZER INC-2012242623

PATIENT
  Age: 67 Year
  Sex: Male
  Weight: 77.1 kg

DRUGS (7)
  1. SUTENT [Suspect]
     Indication: GASTROINTESTINAL STROMAL TUMOUR
     Dosage: 37.5 mg, (12.5mg x 3 caps)
     Dates: start: 20120906
  2. SUTENT [Suspect]
     Dosage: 25 mg, UNK
     Dates: start: 20120919, end: 20120922
  3. SUTENT [Suspect]
     Dosage: 37.5 mg, UNK
     Dates: start: 20120923, end: 20120924
  4. SUTENT [Suspect]
     Dosage: 25 mg, UNK
     Dates: start: 20120925, end: 20120927
  5. SUTENT [Suspect]
     Dosage: 37.5 mg, UNK
     Dates: start: 20120928
  6. MAGNESIUM [Concomitant]
     Dosage: UNK
  7. POTASSIUM [Concomitant]
     Dosage: UNK

REACTIONS (3)
  - Palmar-plantar erythrodysaesthesia syndrome [Unknown]
  - Blood pressure increased [Unknown]
  - Sleep disorder [Unknown]
